FAERS Safety Report 13329930 (Version 1)
Quarter: 2017Q1

REPORT INFORMATION
  Report Type: Spontaneous
  Country: US (occurrence: US)
  Receive Date: 20170313
  Receipt Date: 20170313
  Transmission Date: 20170428
  Serious: Yes (Death, Other)
  Sender: FDA-Public Use
  Company Number: US-TEVA-748043USA

PATIENT
  Age: 35 Year
  Sex: Female

DRUGS (8)
  1. ATIVAN [Suspect]
     Active Substance: LORAZEPAM
     Indication: BACK PAIN
     Dosage: UP TO 6MG
     Route: 030
  2. LIOTHYRONINE [Concomitant]
     Active Substance: LIOTHYRONINE
     Route: 065
  3. METHADONE [Suspect]
     Active Substance: METHADONE HYDROCHLORIDE
     Indication: BACK PAIN
     Route: 065
  4. PERCOCET [Concomitant]
     Active Substance: ACETAMINOPHEN\OXYCODONE HYDROCHLORIDE
     Indication: BACK PAIN
     Route: 065
  5. DIAZEPAM. [Suspect]
     Active Substance: DIAZEPAM
     Indication: BACK PAIN
     Route: 065
  6. BUPROPION. [Concomitant]
     Active Substance: BUPROPION
     Indication: DEPRESSION
     Route: 065
  7. FLUOXETINE [Concomitant]
     Active Substance: FLUOXETINE HYDROCHLORIDE
     Indication: DEPRESSION
     Route: 065
  8. OXYCODONE [Suspect]
     Active Substance: OXYCODONE
     Indication: BACK PAIN
     Dosage: UP TO 100MG EACH DAY
     Route: 065

REACTIONS (5)
  - Death [Fatal]
  - Suicidal ideation [Unknown]
  - Drug withdrawal syndrome [Fatal]
  - Drug dependence [Unknown]
  - Aggression [Unknown]
